FAERS Safety Report 6728186-4 (Version None)
Quarter: 2010Q2

REPORT INFORMATION
  Report Type: 
  Country: None (occurrence: None)
  Receive Date: 20100517
  Receipt Date: 20100506
  Transmission Date: 20101027
  Serious: Yes (Other)
  Sender: FDA-Public Use
  Company Number: B0649044A

PATIENT
  Age: 65 Year
  Sex: Male

DRUGS (1)
  1. CEFUROXIME [Suspect]
     Dosage: 1.5G TWICE PER DAY
     Route: 048

REACTIONS (8)
  - ABDOMINAL DISTENSION [None]
  - ACUTE HEPATIC FAILURE [None]
  - ALANINE AMINOTRANSFERASE INCREASED [None]
  - AMMONIA INCREASED [None]
  - BLOOD BILIRUBIN INCREASED [None]
  - DECREASED APPETITE [None]
  - DIARRHOEA [None]
  - JAUNDICE [None]
